FAERS Safety Report 12386302 (Version 2)
Quarter: 2016Q2

REPORT INFORMATION
  Report Type: Spontaneous
  Country: GB (occurrence: GB)
  Receive Date: 20160519
  Receipt Date: 20160602
  Transmission Date: 20160815
  Serious: Yes (Other)
  Sender: FDA-Public Use
  Company Number: GB-ROCHE-1758922

PATIENT
  Age: 55 Year
  Sex: Female

DRUGS (4)
  1. DENOSUMAB [Concomitant]
     Active Substance: DENOSUMAB
     Indication: METASTASES TO BONE
     Route: 065
     Dates: start: 201501
  2. TAMOXIFEN [Concomitant]
     Active Substance: TAMOXIFEN
  3. KADCYLA [Suspect]
     Active Substance: ADO-TRASTUZUMAB EMTANSINE
     Indication: METASTASES TO BONE
     Route: 065
     Dates: start: 201501
  4. HERCEPTIN [Suspect]
     Active Substance: TRASTUZUMAB
     Indication: BREAST CANCER
     Route: 065
     Dates: start: 2013

REACTIONS (3)
  - Carcinoembryonic antigen increased [Unknown]
  - Metastases to bone [Unknown]
  - Liver function test abnormal [Unknown]
